FAERS Safety Report 14340636 (Version 1)
Quarter: 2018Q1

REPORT INFORMATION
  Report Type: Spontaneous
  Country: RU (occurrence: RU)
  Receive Date: 20180101
  Receipt Date: 20180101
  Transmission Date: 20180509
  Serious: Yes (Hospitalization, Other)
  Sender: FDA-Public Use
  Company Number: RU-ASTRAZENECA-2017SE30125

PATIENT
  Age: 68 Year
  Sex: Male
  Weight: 97 kg

DRUGS (11)
  1. BETALOC ZOK [Concomitant]
     Active Substance: METOPROLOL SUCCINATE
  2. ENALAPRIL [Concomitant]
     Active Substance: ENALAPRIL
  3. BRILINTA [Suspect]
     Active Substance: TICAGRELOR
     Indication: MYOCARDIAL INFARCTION
     Route: 048
     Dates: start: 20170206
  4. DIROTON [Concomitant]
     Active Substance: LISINOPRIL
  5. CAPOTEN [Concomitant]
     Active Substance: CAPTOPRIL
  6. CORDARONE [Concomitant]
     Active Substance: AMIODARONE HYDROCHLORIDE
  7. NORVASK [Concomitant]
     Active Substance: AMLODIPINE BESYLATE
  8. CARDIOMAGNYL [Concomitant]
     Active Substance: ASPIRIN\MAGNESIUM HYDROXIDE
  9. LIPRIMAR [Concomitant]
     Active Substance: ATORVASTATIN CALCIUM
  10. CONCOR [Concomitant]
     Active Substance: BISOPROLOL FUMARATE
  11. VALS [Concomitant]

REACTIONS (3)
  - Arrhythmia [Not Recovered/Not Resolved]
  - Blood pressure increased [Recovered/Resolved]
  - Pain [Not Recovered/Not Resolved]

NARRATIVE: CASE EVENT DATE: 20170316
